FAERS Safety Report 6944965-2 (Version None)
Quarter: 2010Q3

REPORT INFORMATION
  Report Type: 
  Country: None (occurrence: None)
  Receive Date: 20100827
  Receipt Date: 20100819
  Transmission Date: 20110219
  Serious: Yes (Hospitalization)
  Sender: FDA-Public Use
  Company Number: US-PURDUE-USA-2010-0045804

PATIENT
  Sex: Male

DRUGS (2)
  1. OXYCONTIN [Suspect]
     Indication: PAIN
     Dosage: 60 MG, Q8H
  2. NALBUPHINE [Suspect]
     Indication: MUSCULOSKELETAL PAIN

REACTIONS (5)
  - DRUG WITHDRAWAL SYNDROME [None]
  - INHIBITORY DRUG INTERACTION [None]
  - PANCREATITIS [None]
  - RETCHING [None]
  - VOMITING [None]
